FAERS Safety Report 8374257-9 (Version None)
Quarter: 2012Q2

REPORT INFORMATION
  Report Type: 
  Country: None (occurrence: None)
  Receive Date: 20120521
  Receipt Date: 20120515
  Transmission Date: 20120825
  Serious: Yes (Death, Hospitalization, Other)
  Sender: FDA-Public Use
  Company Number: US-TEVA-335533USA

PATIENT
  Sex: Female

DRUGS (1)
  1. CLOZAPINE [Suspect]
     Indication: PARKINSON'S DISEASE
     Route: 048
     Dates: start: 20120217, end: 20120424

REACTIONS (5)
  - AGRANULOCYTOSIS [None]
  - MYELODYSPLASTIC SYNDROME [None]
  - PYREXIA [None]
  - LEUKOPENIA [None]
  - DEATH [None]
